FAERS Safety Report 5864270-5 (Version None)
Quarter: 2008Q3

REPORT INFORMATION
  Report Type: 
  Country: None (occurrence: None)
  Receive Date: 20080829
  Receipt Date: 20080819
  Transmission Date: 20090109
  Serious: Yes (Other)
  Sender: FDA-Public Use
  Company Number: US-AMGEN-US288907

PATIENT
  Sex: Male
  Weight: 100.8 kg

DRUGS (17)
  1. PROCRIT [Suspect]
     Indication: ANAEMIA OF MALIGNANT DISEASE
     Route: 065
  2. LEUSTATIN [Suspect]
     Route: 042
     Dates: start: 20070514, end: 20071001
  3. RITUXAN [Concomitant]
     Dates: start: 20080514
  4. CYTOXAN [Concomitant]
  5. NEUPOGEN [Concomitant]
  6. MULTI-VITAMINS [Concomitant]
     Route: 048
  7. TRAZODONE HCL [Concomitant]
     Route: 048
  8. ZOFRAN [Concomitant]
     Route: 048
  9. AMBIEN [Concomitant]
     Route: 048
  10. NEXIUM [Concomitant]
     Route: 048
  11. FIORICET [Concomitant]
     Route: 048
  12. KLONOPIN [Concomitant]
     Route: 048
  13. ZOLOFT [Concomitant]
     Route: 048
  14. DONNATAL [Concomitant]
     Route: 048
  15. BACTRIM [Concomitant]
     Route: 048
  16. LORAZEPAM [Concomitant]
     Route: 048
  17. DESIPRAMINE HCL [Concomitant]
     Route: 048

REACTIONS (1)
  - BONE MARROW FAILURE [None]
